FAERS Safety Report 8655514 (Version 4)
Quarter: 2012Q4

REPORT INFORMATION
  Report Type: 
  Country: ES (occurrence: ES)
  Receive Date: 20120709
  Receipt Date: 20121002
  Transmission Date: 20130627
  Serious: Yes (Hospitalization)
  Sender: FDA-Public Use
  Company Number: ES-ELI_LILLY_AND_COMPANY-ES201207000173

PATIENT
  Age: 85 Year
  Sex: Female
  Weight: 55 kg

DRUGS (7)
  1. FORSTEO [Suspect]
     Indication: OSTEOPOROSIS
     Dosage: 20 ug, qd
     Route: 058
     Dates: start: 20120601
  2. EUTHYROX [Concomitant]
     Indication: THYROID DISORDER
     Dosage: 50 DF, other
     Route: 048
  3. EUTHYROX [Concomitant]
     Dosage: 75 DF, other
     Route: 048
  4. ANAGASTRA [Concomitant]
     Indication: PROPHYLAXIS
     Dosage: 40 mg, qd
     Route: 048
  5. KILOR [Concomitant]
     Indication: ANAEMIA
     Dosage: 40 DF, qd
     Route: 048
  6. NATECAL D [Concomitant]
     Indication: MINERAL SUPPLEMENTATION
     Dosage: UNK, bid
     Route: 048
  7. ANASMA [Concomitant]
     Indication: ASTHMA
     Dosage: UNK, bid (2 inhalations per day)
     Route: 055

REACTIONS (1)
  - Kidney infection [Recovering/Resolving]
